FAERS Safety Report 4969509-6 (Version None)
Quarter: 2006Q2

REPORT INFORMATION
  Report Type: 
  Country: None (occurrence: None)
  Receive Date: 20060406
  Receipt Date: 20060326
  Transmission Date: 20061013
  Serious: Yes (Hospitalization)
  Sender: FDA-Public Use
  Company Number: HQWYE555028MAR06

PATIENT
  Sex: Male
  Weight: 4 kg

DRUGS (2)
  1. EFFEXOR XR [Suspect]
     Indication: DEPRESSION
     Dosage: 150 MG 1X PER 1 DAY, TRANSPLANCENTAL
     Route: 064
  2. ATIVAN [Suspect]
     Dosage: 0.5 MG/KG X DOSES
     Dates: start: 20060301, end: 20060301

REACTIONS (19)
  - AGITATION NEONATAL [None]
  - CAESAREAN SECTION [None]
  - DIARRHOEA NEONATAL [None]
  - DRUG EXPOSURE DURING PREGNANCY [None]
  - DRUG WITHDRAWAL SYNDROME NEONATAL [None]
  - FEEDING DISORDER NEONATAL [None]
  - FOETAL DISTRESS SYNDROME [None]
  - IRRITABILITY [None]
  - JOINT HYPEREXTENSION [None]
  - MUSCLE RIGIDITY [None]
  - MUSCLE SPASMS [None]
  - NASAL FLARING [None]
  - NEONATAL DISORDER [None]
  - NEONATAL TACHYPNOEA [None]
  - REBOUND EFFECT [None]
  - RESTLESSNESS [None]
  - TREMOR NEONATAL [None]
  - VOMITING NEONATAL [None]
  - VOMITING PROJECTILE [None]
